FAERS Safety Report 19471244 (Version 1)
Quarter: 2021Q2

REPORT INFORMATION
  Report Type: Spontaneous
  Country: BR (occurrence: BR)
  Receive Date: 20210628
  Receipt Date: 20210628
  Transmission Date: 20210717
  Serious: Yes (Other)
  Sender: FDA-Public Use
  Company Number: BR-BIOMARINAP-BR-2021-137240

PATIENT
  Age: 14 Year
  Sex: Female

DRUGS (1)
  1. VIMIZIM [Suspect]
     Active Substance: ELOSULFASE ALFA
     Indication: MUCOPOLYSACCHARIDOSIS IV
     Dosage: UNK, QW
     Route: 042
     Dates: start: 201701

REACTIONS (4)
  - Kyphosis [Unknown]
  - Intervertebral disc protrusion [Unknown]
  - Hypopnoea [Unknown]
  - Lordosis [Unknown]

NARRATIVE: CASE EVENT DATE: 2017
